FAERS Safety Report 8169482-6 (Version None)
Quarter: 2012Q1

REPORT INFORMATION
  Report Type: 
  Country: None (occurrence: None)
  Receive Date: 20120228
  Receipt Date: 20120220
  Transmission Date: 20120608
  Serious: Yes (Other)
  Sender: FDA-Public Use
  Company Number: JP-CELGENEUS-087-21880-11042838

PATIENT
  Sex: Male

DRUGS (21)
  1. REVLIMID [Suspect]
     Dosage: 25 MILLIGRAM
     Route: 048
     Dates: start: 20110426, end: 20110516
  2. DEXAMETHASONE ACETATE [Suspect]
     Dosage: 40 MILLIGRAM
     Route: 048
     Dates: start: 20110426, end: 20110523
  3. DEXAMETHASONE ACETATE [Suspect]
     Dosage: 40 MILLIGRAM
     Route: 048
     Dates: start: 20110524, end: 20110607
  4. AMLODIPINE BESYLATE [Concomitant]
     Indication: HYPERTENSION
     Dosage: 5 MILLIGRAM
     Route: 048
     Dates: start: 20101221, end: 20110614
  5. CRESTOR [Concomitant]
     Dosage: 2.5 MILLIGRAM
     Route: 048
     Dates: start: 20101221, end: 20110614
  6. DEXAMETHASONE ACETATE [Suspect]
     Dosage: 20 MILLIGRAM
     Route: 048
     Dates: start: 20111004, end: 20111121
  7. LOSARTAN POTASSIUM [Concomitant]
     Indication: HYPERTENSION
     Dosage: 50 MILLIGRAM
     Route: 048
     Dates: start: 20101221, end: 20110614
  8. REVLIMID [Suspect]
     Dosage: 15 MILLIGRAM
     Route: 048
     Dates: start: 20110525, end: 20110607
  9. ASPIRIN [Concomitant]
     Indication: PROPHYLAXIS
     Dosage: 100 MILLIGRAM
     Route: 048
     Dates: start: 20101221, end: 20110614
  10. ZANTAC [Concomitant]
     Indication: PROPHYLAXIS
     Dosage: 150 MILLIGRAM
     Route: 048
     Dates: start: 20101221, end: 20110614
  11. REVLIMID [Suspect]
     Dosage: 25 MILLIGRAM
     Route: 048
     Dates: start: 20110201, end: 20110221
  12. REVLIMID [Suspect]
     Dosage: 10 MILLIGRAM
     Route: 048
     Dates: start: 20111004, end: 20111024
  13. DEXAMETHASONE ACETATE [Suspect]
     Dosage: 40 MILLIGRAM
     Route: 048
     Dates: start: 20110118, end: 20110328
  14. HARNAL D [Concomitant]
     Dosage: .2 MILLIGRAM
     Route: 048
     Dates: start: 20101221, end: 20110614
  15. REVLIMID [Suspect]
     Indication: MULTIPLE MYELOMA
     Dosage: 25 MILLIGRAM
     Route: 048
     Dates: start: 20101221, end: 20110111
  16. REVLIMID [Suspect]
     Dosage: 25 MILLIGRAM
     Route: 048
     Dates: start: 20110301, end: 20110314
  17. DEXAMETHASONE ACETATE [Suspect]
     Indication: MULTIPLE MYELOMA
     Dosage: 40 MILLIGRAM
     Route: 048
     Dates: start: 20101221, end: 20110117
  18. DEXAMETHASONE ACETATE [Suspect]
     Dosage: 40 MILLIGRAM
     Route: 048
     Dates: start: 20110329, end: 20110425
  19. PREDNISOLONE [Concomitant]
     Dosage: 5 MILLIGRAM
     Route: 048
     Dates: start: 20101221, end: 20110328
  20. PREDNISOLONE [Concomitant]
     Dosage: 5 MILLIGRAM
     Route: 048
     Dates: start: 20110607, end: 20110609
  21. REVLIMID [Suspect]
     Dosage: 25 MILLIGRAM
     Route: 048
     Dates: start: 20110329, end: 20110418

REACTIONS (7)
  - PLATELET COUNT DECREASED [None]
  - NEUTROPENIA [None]
  - TREMOR [None]
  - LIVER DISORDER [None]
  - CONJUNCTIVAL HAEMORRHAGE [None]
  - HAEMORRHOIDAL HAEMORRHAGE [None]
  - WHITE BLOOD CELL COUNT DECREASED [None]
